FAERS Safety Report 18060201 (Version 1)
Quarter: 2020Q3

REPORT INFORMATION
  Report Type: Spontaneous
  Country: GB (occurrence: GB)
  Receive Date: 20200723
  Receipt Date: 20200723
  Transmission Date: 20201103
  Serious: Yes (Hospitalization, Disabling, Other)
  Sender: FDA-Public Use
  Company Number: GB-MYLANLABS-2020M1065366

PATIENT
  Age: 54 Year
  Sex: Male
  Weight: 96 kg

DRUGS (1)
  1. DOXYCYCLINE. [Suspect]
     Active Substance: DOXYCYCLINE
     Indication: LOWER RESPIRATORY TRACT INFECTION
     Dosage: UNKNOWN
     Route: 048
     Dates: start: 20200503, end: 20200505

REACTIONS (2)
  - Periorbital swelling [Unknown]
  - Vitreous detachment [Unknown]

NARRATIVE: CASE EVENT DATE: 20200505
